FAERS Safety Report 7759301-1 (Version None)
Quarter: 2011Q3

REPORT INFORMATION
  Report Type: 
  Country: None (occurrence: None)
  Receive Date: 20110915
  Receipt Date: 20110914
  Transmission Date: 20111222
  Serious: Yes (Other)
  Sender: FDA-Public Use
  Company Number: SP03794

PATIENT
  Age: 49 Year
  Sex: Female

DRUGS (3)
  1. VISICOL [Suspect]
     Indication: PREOPERATIVE CARE
     Dosage: (50 GM), ORAL
     Route: 048
     Dates: start: 20110620, end: 20110620
  2. VISICOL [Suspect]
     Indication: COLONOSCOPY
     Dosage: (50 GM), ORAL
     Route: 048
     Dates: start: 20110620, end: 20110620
  3. FLUVASTATIN SODIUM [Concomitant]

REACTIONS (6)
  - TETANY [None]
  - HYPOPHOSPHATAEMIA [None]
  - ACUTE PHOSPHATE NEPHROPATHY [None]
  - HYPOAESTHESIA [None]
  - HYPERPARATHYROIDISM [None]
  - BLOOD PHOSPHORUS INCREASED [None]
